FAERS Safety Report 4597721-7 (Version None)
Quarter: 2005Q1

REPORT INFORMATION
  Report Type: 
  Country: None (occurrence: None)
  Receive Date: 20050125
  Receipt Date: 20040819
  Transmission Date: 20050727
  Serious: No
  Sender: FDA-Public Use
  Company Number: USA040876022

PATIENT
  Sex: Female
  Weight: 96 kg

DRUGS (9)
  1. FORTEO [Suspect]
     Indication: OSTEOPOROSIS
     Dosage: 20 UG/1 DAY
     Dates: start: 20040401
  2. VASOTEC (ENALAPAIL MALEATE) [Concomitant]
  3. LASIX                          /USA/(FUROSEMIDE) [Concomitant]
  4. CALCIUM CARBONATE W/VITAMIN D NOS [Concomitant]
  5. VITAMIN E [Concomitant]
  6. VITAMIN C [Concomitant]
  7. VITAMIN B-12 [Concomitant]
  8. MAGNESIUM OXIDE [Concomitant]
  9. OXYTROL [Concomitant]

REACTIONS (3)
  - DIZZINESS [None]
  - MYALGIA [None]
  - SKIN IRRITATION [None]
